FAERS Safety Report 6398166-X (Version None)
Quarter: 2009Q4

REPORT INFORMATION
  Report Type: 
  Country: None (occurrence: None)
  Receive Date: 20091013
  Receipt Date: 20091008
  Transmission Date: 20100525
  Serious: Yes (Death, Hospitalization)
  Sender: FDA-Public Use
  Company Number: US-BRISTOL-MYERS SQUIBB COMPANY-13828611

PATIENT
  Age: 58 Year
  Sex: Male
  Weight: 58 kg

DRUGS (6)
  1. ERBITUX [Suspect]
     Indication: HEAD AND NECK CANCER
     Dates: start: 20070605, end: 20070605
  2. RADIATION THERAPY [Suspect]
     Indication: HEAD AND NECK CANCER
     Dosage: 1 DF = 70GY NO OF FRACTIONS:35 NO OF ELAPSED DAYS:44
     Dates: start: 20070419, end: 20070607
  3. OXYCODONE [Concomitant]
  4. PREDNISONE [Concomitant]
  5. PROTONIX [Concomitant]
  6. NYSTATIN [Concomitant]

REACTIONS (3)
  - DYSPNOEA [None]
  - PNEUMONITIS [None]
  - RENAL FAILURE [None]
